FAERS Safety Report 8183663-7 (Version None)
Quarter: 2012Q1

REPORT INFORMATION
  Report Type: 
  Country: None (occurrence: None)
  Receive Date: 20120305
  Receipt Date: 20120222
  Transmission Date: 20120608
  Serious: Yes (Hospitalization, Other)
  Sender: FDA-Public Use
  Company Number: PHFR2012GB001232

PATIENT
  Sex: Male

DRUGS (1)
  1. CLOZARIL [Suspect]
     Indication: SCHIZOPHRENIA
     Route: 048
     Dates: start: 20020507, end: 20120215

REACTIONS (10)
  - BODY TEMPERATURE FLUCTUATION [None]
  - AGRANULOCYTOSIS [None]
  - LOCALISED INFECTION [None]
  - PLATELET COUNT INCREASED [None]
  - HYPOTENSION [None]
  - FEELING COLD [None]
  - WHITE BLOOD CELL COUNT INCREASED [None]
  - HYPERHIDROSIS [None]
  - LYMPHOCYTE COUNT INCREASED [None]
  - CELLULITIS [None]
